FAERS Safety Report 5467298-2 (Version None)
Quarter: 2007Q3

REPORT INFORMATION
  Report Type: 
  Country: None (occurrence: None)
  Receive Date: 20070920
  Receipt Date: 20070912
  Transmission Date: 20080115
  Serious: Yes (Life-Threatening)
  Sender: FDA-Public Use
  Company Number: 2007AL003827

PATIENT
  Sex: Male

DRUGS (1)
  1. MIRTAZAPINE [Suspect]
     Indication: BIPOLAR I DISORDER
     Dosage: 15 MG; QD

REACTIONS (4)
  - ENERGY INCREASED [None]
  - FEELING ABNORMAL [None]
  - INSOMNIA [None]
  - PALPITATIONS [None]
